FAERS Safety Report 6213894-4 (Version None)
Quarter: 2009Q2

REPORT INFORMATION
  Report Type: 
  Country: None (occurrence: None)
  Receive Date: 20090602
  Receipt Date: 20090602
  Transmission Date: 20091009
  Serious: Yes (Hospitalization)
  Sender: FDA-Public Use
  Company Number: None

PATIENT
  Age: 68 Year
  Sex: Female

DRUGS (2)
  1. AVONEX [Suspect]
     Indication: MULTIPLE SCLEROSIS
  2. OXYCODONE 20 MG [Suspect]
     Indication: INSOMNIA
     Dosage: 20 MG EVERY 12 H PO
     Route: 048

REACTIONS (2)
  - HALLUCINATION, AUDITORY [None]
  - PARANOIA [None]
